FAERS Safety Report 21063891 (Version 1)
Quarter: 2022Q3

REPORT INFORMATION
  Report Type: Spontaneous
  Country: US (occurrence: None)
  Receive Date: 20220710
  Receipt Date: 20220710
  Transmission Date: 20221026
  Serious: Yes (Disabling, Other)
  Sender: FDA-Public Use
  Company Number: None

PATIENT
  Age: 38 Year
  Sex: Female
  Weight: 69.75 kg

DRUGS (13)
  1. PLAQUENIL [Suspect]
     Active Substance: HYDROXYCHLOROQUINE SULFATE
     Indication: Systemic lupus erythematosus
     Dates: start: 20180209, end: 20210119
  2. VYVANSE [Concomitant]
     Active Substance: LISDEXAMFETAMINE DIMESYLATE
  3. ACYCLOVIR [Concomitant]
     Active Substance: ACYCLOVIR
  4. RESTASIS [Concomitant]
     Active Substance: CYCLOSPORINE
  5. ZOFRAN [Concomitant]
     Active Substance: ONDANSETRON HYDROCHLORIDE
  6. TIZANIDINE [Concomitant]
     Active Substance: TIZANIDINE
  7. ADDERALL [Concomitant]
     Active Substance: AMPHETAMINE ASPARTATE\AMPHETAMINE SULFATE\DEXTROAMPHETAMINE SACCHARATE\DEXTROAMPHETAMINE SULFATE
  8. Benlysta 200mg auto injector weekly [Concomitant]
  9. metoprolol tartrate 50mg x2 day [Concomitant]
  10. CONTRAVE [Concomitant]
     Active Substance: BUPROPION HYDROCHLORIDE\NALTREXONE HYDROCHLORIDE
  11. ZYRTEC [Concomitant]
     Active Substance: CETIRIZINE HYDROCHLORIDE
  12. saccharomyces boulardii pro biotic [Concomitant]
  13. IBU prn [Concomitant]

REACTIONS (6)
  - Toxicity to various agents [None]
  - Visual impairment [None]
  - Retinal degeneration [None]
  - Visual field defect [None]
  - Drug ineffective [None]
  - Retinal disorder [None]

NARRATIVE: CASE EVENT DATE: 20210119
